FAERS Safety Report 8271817-0 (Version None)
Quarter: 2012Q2

REPORT INFORMATION
  Report Type: 
  Country: None (occurrence: None)
  Receive Date: 20120410
  Receipt Date: 20120329
  Transmission Date: 20120825
  Serious: Yes (Other)
  Sender: FDA-Public Use
  Company Number: US-ROCHE-1041855

PATIENT
  Sex: Male
  Weight: 73.548 kg

DRUGS (5)
  1. OMEGA 3 FATTY ACIDS [Concomitant]
     Route: 048
  2. LOPROX [Concomitant]
     Dates: start: 20111003
  3. ZELBORAF [Suspect]
     Indication: MALIGNANT MELANOMA
     Route: 048
     Dates: start: 20111110
  4. ASPIRIN [Concomitant]
     Route: 048
  5. VALISONE CREAM 0.1% [Concomitant]
     Dates: start: 20110803

REACTIONS (6)
  - MYALGIA [None]
  - RADIATION SKIN INJURY [None]
  - ARTHRALGIA [None]
  - LIVER FUNCTION TEST ABNORMAL [None]
  - VISION BLURRED [None]
  - FATIGUE [None]
